FAERS Safety Report 6844040-1 (Version None)
Quarter: 2010Q3

REPORT INFORMATION
  Report Type: 
  Country: None (occurrence: None)
  Receive Date: 20100714
  Receipt Date: 20100714
  Transmission Date: 20110219
  Serious: Yes (Hospitalization, Disabling, Other)
  Sender: FDA-Public Use
  Company Number: None

PATIENT
  Age: 19 Year
  Sex: Male
  Weight: 78 kg

DRUGS (3)
  1. VIMPAT [Suspect]
     Indication: CONVULSION
     Dosage: 150MG AT BEDTIME PO; 100 MG IN AM PO
     Route: 048
     Dates: start: 20091201, end: 20100712
  2. LYRICA [Concomitant]
  3. PRILOSEC [Concomitant]

REACTIONS (2)
  - LUPUS-LIKE SYNDROME [None]
  - PERICARDIAL EFFUSION [None]
